FAERS Safety Report 4916407-X (Version None)
Quarter: 2006Q1

REPORT INFORMATION
  Report Type: 
  Country: None (occurrence: None)
  Receive Date: 20060217
  Receipt Date: 20051014
  Transmission Date: 20060701
  Serious: Yes (Hospitalization)
  Sender: FDA-Public Use
  Company Number: US-MERCK-0510USA07534

PATIENT
  Age: 63 Year
  Sex: Male

DRUGS (17)
  1. VIOXX [Suspect]
     Indication: OSTEOARTHRITIS
     Route: 048
     Dates: start: 20010905, end: 20040930
  2. VASOTEC RPD [Concomitant]
     Route: 048
     Dates: start: 20010101
  3. PRINIVIL [Concomitant]
     Route: 048
     Dates: start: 20040913
  4. TOPROL-XL [Concomitant]
     Route: 065
     Dates: start: 20030513
  5. PLAVIX [Concomitant]
     Route: 065
     Dates: start: 20040913
  6. LIPITOR [Concomitant]
     Route: 065
     Dates: start: 20050913
  7. VICODIN [Concomitant]
     Route: 065
     Dates: start: 20010601, end: 20040101
  8. PREVACID [Concomitant]
     Route: 065
  9. CLARINEX [Concomitant]
     Route: 065
  10. METRONIDAZOLE [Concomitant]
     Route: 065
  11. TRIMOX [Concomitant]
     Route: 065
  12. LONOX [Concomitant]
     Route: 065
  13. IMODIUM [Concomitant]
     Route: 065
  14. NITRO-DUR [Concomitant]
     Route: 065
  15. NITROQUICK [Concomitant]
     Route: 065
  16. DICLOFENAC [Concomitant]
     Route: 065
     Dates: start: 19990101, end: 20010101
  17. NEXIUM [Concomitant]
     Route: 065

REACTIONS (13)
  - ANGINA PECTORIS [None]
  - ARTHROPATHY [None]
  - CAROTID BRUIT [None]
  - CELLULITIS [None]
  - CORONARY ARTERY DISEASE [None]
  - DEEP VEIN THROMBOSIS [None]
  - HEADACHE [None]
  - HYPERTENSION [None]
  - MYOCARDIAL INFARCTION [None]
  - OSTEOARTHRITIS [None]
  - ROTATOR CUFF SYNDROME [None]
  - SKIN CANCER [None]
  - THROMBOPHLEBITIS [None]
